FAERS Safety Report 10729410 (Version 1)
Quarter: 2015Q1

REPORT INFORMATION
  Report Type: Spontaneous
  Country: US (occurrence: None)
  Receive Date: 20150120
  Receipt Date: 20150120
  Transmission Date: 20150721
  Serious: No
  Sender: FDA-Public Use
  Company Number: None

PATIENT
  Age: 24 Year
  Sex: Female
  Weight: 72.58 kg

DRUGS (2)
  1. LUPRON DEPOT [Suspect]
     Active Substance: LEUPROLIDE ACETATE
     Indication: ENDOMETRIOSIS
     Dosage: 1X A MONTH FOR 3 M, INTO THE MUSCLE
     Route: 030
     Dates: start: 20141015, end: 20141125
  2. LUPRON DEPOT [Suspect]
     Active Substance: LEUPROLIDE ACETATE
     Dosage: 1X A MONTH FOR 3 M, INTO THE MUSCLE
     Route: 030
     Dates: start: 20141015, end: 20141125

REACTIONS (9)
  - Agitation [None]
  - Bipolar disorder [None]
  - Night sweats [None]
  - Drug ineffective [None]
  - Weight increased [None]
  - Insomnia [None]
  - Dizziness [None]
  - Feeling jittery [None]
  - Hot flush [None]

NARRATIVE: CASE EVENT DATE: 20141125
